FAERS Safety Report 8999524 (Version 3)
Quarter: 2013Q4

REPORT INFORMATION
  Report Type: Report from Study
  Country: CZ (occurrence: CZ)
  Receive Date: 20130103
  Receipt Date: 20131018
  Transmission Date: 20140711
  Serious: Yes (Hospitalization)
  Sender: FDA-Public Use
  Company Number: CZ-PFIZER INC-2012334107

PATIENT
  Age: 5 Year
  Sex: Male
  Weight: 18.2 kg

DRUGS (5)
  1. VFEND [Suspect]
     Indication: OESOPHAGEAL CANDIDIASIS
     Dosage: 200 MG, 2X/DAY
     Route: 048
     Dates: start: 20121219, end: 20130103
  2. VFEND [Suspect]
     Dosage: 160 MG, 2X/DAY
     Route: 048
     Dates: start: 20130103, end: 20130104
  3. VFEND [Suspect]
     Indication: OESOPHAGEAL CANDIDIASIS
     Dosage: 81 MG, 2X/DAY
     Route: 042
     Dates: start: 20121213, end: 20121218
  4. CYTOSAR [Suspect]
     Indication: LEUKAEMIA
     Dosage: 54 MG, 1X/DAY
     Route: 042
     Dates: start: 20121220, end: 20121223
  5. ENDOXAN [Suspect]
     Indication: LEUKAEMIA
     Dosage: 720 MG, SINGLE
     Route: 042
     Dates: start: 20121218, end: 20121218

REACTIONS (1)
  - Febrile neutropenia [Recovered/Resolved]
